FAERS Safety Report 10186715 (Version 4)
Quarter: 2014Q2

REPORT INFORMATION
  Report Type: Report from Study
  Country: CA (occurrence: CA)
  Receive Date: 20140521
  Receipt Date: 20140620
  Transmission Date: 20141212
  Serious: Yes (Other)
  Sender: FDA-Public Use
  Company Number: PHHY2014CA059317

PATIENT
  Sex: Female

DRUGS (4)
  1. GILENYA [Suspect]
     Indication: RELAPSING-REMITTING MULTIPLE SCLEROSIS
     Dosage: 0.5 MG, QD
     Route: 048
     Dates: start: 20120218
  2. GILENYA [Suspect]
     Dosage: 0.5 MG, QD
     Route: 048
     Dates: start: 20140616
  3. AMINOPYRIDINE [Concomitant]
     Dosage: 10 MG, TID
  4. CELEBREX [Concomitant]

REACTIONS (4)
  - Hiatus hernia [Unknown]
  - Mobility decreased [Unknown]
  - Nuclear magnetic resonance imaging abnormal [Unknown]
  - Upper respiratory tract infection [Recovered/Resolved with Sequelae]
